APPROVED DRUG PRODUCT: KEPPRA
Active Ingredient: LEVETIRACETAM
Strength: 250MG
Dosage Form/Route: TABLET;ORAL
Application: N021035 | Product #001 | TE Code: AB
Applicant: UCB INC
Approved: Nov 30, 1999 | RLD: Yes | RS: No | Type: RX

PATENTS:
Patent 8802142 | Expires: Jun 7, 2031
Patent 8802142*PED | Expires: Dec 7, 2031